FAERS Safety Report 6268770-8 (Version None)
Quarter: 2009Q3

REPORT INFORMATION
  Report Type: 
  Country: None (occurrence: None)
  Receive Date: 20090715
  Receipt Date: 20090713
  Transmission Date: 20100115
  Serious: Yes (Life-Threatening, Hospitalization)
  Sender: FDA-Public Use
  Company Number: AU-WYE-G03473209

PATIENT
  Age: 78 Year
  Sex: Male

DRUGS (2)
  1. PRISTIQ [Suspect]
     Indication: DEPRESSION
     Route: 048
     Dates: start: 20090326, end: 20090405
  2. PRISTIQ [Suspect]
     Dosage: 100MG DAILY
     Route: 048
     Dates: start: 20090406

REACTIONS (1)
  - MYOCARDIAL INFARCTION [None]
